FAERS Safety Report 18108851 (Version 1)
Quarter: 2020Q3

REPORT INFORMATION
  Report Type: Other
  Country: GB (occurrence: GB)
  Receive Date: 20200804
  Receipt Date: 20200804
  Transmission Date: 20201103
  Serious: Yes (Hospitalization, Other)
  Sender: FDA-Public Use
  Company Number: GB-VALIDUS PHARMACEUTICALS LLC-GB-2020VAL000648

PATIENT

DRUGS (7)
  1. LISINOPRIL. [Suspect]
     Active Substance: LISINOPRIL
     Indication: ESSENTIAL HYPERTENSION
     Dosage: 40 MG, QD
     Route: 048
     Dates: end: 20200627
  2. ZAPAIN [Concomitant]
     Active Substance: ACETAMINOPHEN\CODEINE PHOSPHATE
     Indication: PRODUCT USED FOR UNKNOWN INDICATION
     Dosage: UNK
  3. SOTALOL HYDROCHLORIDE. [Concomitant]
     Active Substance: SOTALOL HYDROCHLORIDE
     Indication: PRODUCT USED FOR UNKNOWN INDICATION
     Dosage: UNK
  4. INDAPAMIDE. [Suspect]
     Active Substance: INDAPAMIDE
     Indication: ESSENTIAL HYPERTENSION
     Dosage: 1.5 MG, QD (IN MORNING)
     Route: 048
     Dates: end: 20200627
  5. LANSOPRAZOLE. [Concomitant]
     Active Substance: LANSOPRAZOLE
     Indication: PRODUCT USED FOR UNKNOWN INDICATION
     Dosage: UNK
  6. FUROSEMIDE. [Suspect]
     Active Substance: FUROSEMIDE
     Indication: OEDEMA PERIPHERAL
     Dosage: 20 MG, QD
     Route: 048
     Dates: start: 20200603, end: 20200627
  7. PREGABALIN. [Concomitant]
     Active Substance: PREGABALIN
     Indication: PRODUCT USED FOR UNKNOWN INDICATION
     Dosage: UNK

REACTIONS (4)
  - Gait disturbance [Unknown]
  - Hypophagia [Unknown]
  - Urine output decreased [Unknown]
  - Acute kidney injury [Recovered/Resolved]

NARRATIVE: CASE EVENT DATE: 20200627
